FAERS Safety Report 8113767-6 (Version None)
Quarter: 2012Q1

REPORT INFORMATION
  Report Type: 
  Country: None (occurrence: None)
  Receive Date: 20120203
  Receipt Date: 20120128
  Transmission Date: 20120608
  Serious: Yes (Hospitalization, Other)
  Sender: FDA-Public Use
  Company Number: US-ABBOTT-12P-163-0899204-00

PATIENT
  Sex: Male

DRUGS (1)
  1. HUMIRA [Suspect]
     Indication: RHEUMATOID ARTHRITIS
     Dates: start: 20030101

REACTIONS (7)
  - OEDEMA PERIPHERAL [None]
  - MUSCULAR DYSTROPHY [None]
  - BLOOD TEST ABNORMAL [None]
  - GAIT DISTURBANCE [None]
  - DYSSTASIA [None]
  - BLOOD SODIUM DECREASED [None]
  - OEDEMA [None]
